FAERS Safety Report 9431966 (Version 3)
Quarter: 2014Q2

REPORT INFORMATION
  Report Type: Spontaneous
  Country: ES (occurrence: None)
  Receive Date: 20130726
  Receipt Date: 20140612
  Transmission Date: 20141212
  Serious: Yes (Hospitalization)
  Sender: FDA-Public Use
  Company Number: MC201300389

PATIENT
  Age: 91 Year
  Sex: Female

DRUGS (6)
  1. ANGIOX [Suspect]
     Indication: ACUTE MYOCARDIAL INFARCTION
     Dosage: 6 ML (250 MG),INTRAVENOUS BOLUS
     Route: 040
     Dates: start: 20121111, end: 20121112
  2. ATORVASTATIN [Suspect]
     Indication: ACUTE MYOCARDIAL INFARCTION
     Dosage: 80 MG, QD (80 MG), ORAL
     Route: 048
     Dates: start: 20121111, end: 20121115
  3. CARVEDILOL (CARDVEDILOL) (CARVEDILOL) [Concomitant]
  4. ENALAPRIL (ENALAPRIL) (ENALAPRIL) [Concomitant]
  5. PANTOPRAZOL (PANTOPRAZOLE) (PANTOPRAZOLE) [Concomitant]
  6. SUCRALFATE (SUCRALFATE) (SUCRALFATE) [Concomitant]

REACTIONS (1)
  - Hepatitis [None]
